FAERS Safety Report 6727898-6 (Version None)
Quarter: 2010Q2

REPORT INFORMATION
  Report Type: 
  Country: None (occurrence: None)
  Receive Date: 20100512
  Receipt Date: 20100426
  Transmission Date: 20101027
  Serious: No
  Sender: FDA-Public Use
  Company Number: APP201000295

PATIENT
  Age: 44 Year
  Sex: Male

DRUGS (3)
  1. CISPLATIN [Suspect]
     Indication: PERITONEAL SARCOMA
     Dosage: 30 MG/M2, DAYS 1 THROUGH 4, INTRAVENOUS
     Route: 042
  2. DACARBAZINE [Suspect]
     Indication: PERITONEAL SARCOMA
     Dosage: 400 MG/M2, DAYS 1 THROUGH 3, INTRAVENOUS
     Route: 042
  3. ADRIAMYCIN PFS [Suspect]
     Indication: PERITONEAL SARCOMA
     Dosage: 30 MG/M2, DAYS 1 AND 3, INTRAVENOUS
     Route: 042

REACTIONS (2)
  - RENAL FAILURE ACUTE [None]
  - TUMOUR LYSIS SYNDROME [None]
